FAERS Safety Report 11755701 (Version 1)
Quarter: 2015Q4

REPORT INFORMATION
  Report Type: Other
  Country: FR (occurrence: FR)
  Receive Date: 20151119
  Receipt Date: 20151119
  Transmission Date: 20160304
  Serious: Yes (Hospitalization)
  Sender: FDA-Public Use
  Company Number: FR-TAKEDA-2015MPI007742

PATIENT

DRUGS (15)
  1. VELCADE [Suspect]
     Active Substance: BORTEZOMIB
     Dosage: 2.48 MG, UNK
     Route: 042
     Dates: start: 20150917
  2. ENDOXANA [Suspect]
     Active Substance: CYCLOPHOSPHAMIDE
     Dosage: 955 MG, UNK
     Route: 042
     Dates: start: 20150907
  3. ENDOXANA [Suspect]
     Active Substance: CYCLOPHOSPHAMIDE
     Dosage: 955 MG, UNK
     Route: 042
     Dates: start: 20150914
  4. VELCADE [Suspect]
     Active Substance: BORTEZOMIB
     Dosage: 2.48 MG, UNK
     Route: 042
     Dates: start: 20150914
  5. VELCADE [Suspect]
     Active Substance: BORTEZOMIB
     Dosage: 2.48 MG, UNK
     Route: 042
     Dates: start: 20150907
  6. VELCADE [Suspect]
     Active Substance: BORTEZOMIB
     Dosage: 2.48 MG, UNK
     Route: 042
     Dates: start: 20150910
  7. PENTACARINAT [Concomitant]
     Active Substance: PENTAMIDINE ISETHIONATE
     Dosage: UNK
     Route: 065
  8. VELCADE [Suspect]
     Active Substance: BORTEZOMIB
     Indication: PLASMA CELL MYELOMA
     Dosage: 2.48 MG, UNK
     Route: 042
     Dates: start: 20150928
  9. ENDOXANA [Suspect]
     Active Substance: CYCLOPHOSPHAMIDE
     Dosage: 955 MG, UNK
     Route: 042
     Dates: start: 20151005
  10. ZELITREX [Concomitant]
     Active Substance: VALACYCLOVIR HYDROCHLORIDE
     Dosage: 500 MG, UNK
     Route: 065
  11. ENDOXANA [Suspect]
     Active Substance: CYCLOPHOSPHAMIDE
     Indication: PLASMA CELL MYELOMA
     Dosage: 955 MG, UNK
     Route: 042
     Dates: start: 20150928
  12. INEXIUM                            /01479302/ [Concomitant]
     Active Substance: ESOMEPRAZOLE MAGNESIUM
     Dosage: 40 MG, QD
     Route: 065
  13. ENDOXANA [Suspect]
     Active Substance: CYCLOPHOSPHAMIDE
     Dosage: 955 MG, UNK
     Route: 042
     Dates: start: 20151012
  14. ENDOXANA [Suspect]
     Active Substance: CYCLOPHOSPHAMIDE
     Dosage: 955 MG, UNK
     Route: 042
     Dates: start: 20150921
  15. DUROGESIC [Concomitant]
     Active Substance: FENTANYL
     Dosage: 12 ?G, UNK
     Route: 065

REACTIONS (2)
  - Diarrhoea [Recovered/Resolved]
  - Weight decreased [Not Recovered/Not Resolved]

NARRATIVE: CASE EVENT DATE: 201507
